FAERS Safety Report 5765610-8 (Version None)
Quarter: 2008Q2

REPORT INFORMATION
  Report Type: 
  Country: None (occurrence: None)
  Receive Date: 20080605
  Receipt Date: 20080523
  Transmission Date: 20081010
  Serious: Yes (Other)
  Sender: FDA-Public Use
  Company Number: E2090-00430-SPO-JP

PATIENT
  Age: 74 Year
  Sex: Male

DRUGS (5)
  1. ZONISAMIDE [Suspect]
     Indication: EPILEPSY
     Dosage: 300 MG, ORAL
     Route: 048
     Dates: start: 20070413, end: 20070517
  2. GASMOTIN (MOSAPRIDE CITRATE) [Suspect]
     Dosage: ORAL
     Route: 048
  3. MYSLEE (ZOLPIDEM TARTRATE) (ZOLPIDEM TARTRATE) [Concomitant]
  4. LANSOPRAZOLE [Concomitant]
  5. DEPAS (ETIZOLAM) [Concomitant]

REACTIONS (2)
  - DRUG ERUPTION [None]
  - OCULOMUCOCUTANEOUS SYNDROME [None]
